FAERS Safety Report 24989650 (Version 3)
Quarter: 2025Q2

REPORT INFORMATION
  Report Type: Spontaneous
  Country: US (occurrence: US)
  Receive Date: 20250220
  Receipt Date: 20250530
  Transmission Date: 20250716
  Serious: Yes (Hospitalization)
  Sender: ACCORD
  Company Number: US-Accord-470106

PATIENT
  Age: 32 Year
  Sex: Female

DRUGS (3)
  1. LISINOPRIL [Suspect]
     Active Substance: LISINOPRIL
     Indication: Hypertension
  2. AZATHIOPRINE [Concomitant]
     Active Substance: AZATHIOPRINE
     Indication: Crohn^s disease
  3. INFLIXIMAB [Concomitant]
     Active Substance: INFLIXIMAB
     Indication: Crohn^s disease

REACTIONS (4)
  - Intestinal angioedema [Recovered/Resolved]
  - Hypotension [Recovered/Resolved]
  - Syncope [Recovered/Resolved]
  - Ascites [Recovered/Resolved]
